FAERS Safety Report 6429275-4 (Version None)
Quarter: 2009Q4

REPORT INFORMATION
  Report Type: 
  Country: None (occurrence: None)
  Receive Date: 20091105
  Receipt Date: 20091030
  Transmission Date: 20100525
  Serious: Yes (Death, Hospitalization)
  Sender: FDA-Public Use
  Company Number: PHHY2009JP45924

PATIENT
  Age: 71 Year
  Sex: Male

DRUGS (3)
  1. VOLTAREN [Suspect]
     Indication: RHEUMATOID ARTHRITIS
     Route: 048
  2. METHOTREXATE [Suspect]
     Indication: RHEUMATOID ARTHRITIS
     Dosage: 4MG A YEAR AND 6 MONTHS
     Route: 048
  3. PREDNISOLONE [Concomitant]

REACTIONS (6)
  - COUGH [None]
  - DYSPNOEA [None]
  - HYPERTHERMIA [None]
  - NASOPHARYNGITIS [None]
  - PNEUMONIA BACTERIAL [None]
  - RHINORRHOEA [None]
